FAERS Safety Report 5452043-7 (Version None)
Quarter: 2007Q3

REPORT INFORMATION
  Report Type: 
  Country: None (occurrence: None)
  Receive Date: 20070912
  Receipt Date: 20070716
  Transmission Date: 20080115
  Serious: Yes (Other)
  Sender: FDA-Public Use
  Company Number: 07-213

PATIENT
  Age: 61 Year
  Sex: Female

DRUGS (8)
  1. ERGOCALCIFEROL [Suspect]
     Indication: OSTEOPOROSIS
     Dosage: 1 CAPSULE WEEKLY, ORAL; THEN 1 CAPSULE QOW
     Route: 048
     Dates: start: 20051201, end: 20070201
  2. ERGOCALCIFEROL [Suspect]
     Indication: OSTEOPOROSIS
     Dosage: 1 CAPSULE WEEKLY, ORAL; THEN 1 CAPSULE QOW
     Route: 048
     Dates: start: 20070201
  3. METHOTREXATE [Concomitant]
  4. ORAL CONTRACEPTIVES [Concomitant]
  5. HEPARIN [Concomitant]
  6. KENALOG PERANTIL [Concomitant]
  7. ATENOLOL [Concomitant]
  8. ASPIRIN [Concomitant]

REACTIONS (3)
  - BACK PAIN [None]
  - FLANK PAIN [None]
  - NEPHROLITHIASIS [None]
